FAERS Safety Report 18603736 (Version 1)
Quarter: 2020Q4

REPORT INFORMATION
  Report Type: Spontaneous
  Country: US (occurrence: US)
  Receive Date: 20201210
  Receipt Date: 20201210
  Transmission Date: 20210114
  Serious: No
  Sender: FDA-Public Use
  Company Number: None

PATIENT
  Age: 69 Year
  Sex: Male
  Weight: 76.95 kg

DRUGS (7)
  1. ELIGARD [Concomitant]
     Active Substance: LEUPROLIDE ACETATE
  2. CRANBERRY CONCENTRATE [Concomitant]
     Active Substance: CRANBERRY CONCENTRATE
  3. PREDNISONE. [Concomitant]
     Active Substance: PREDNISONE
  4. TRODANTIN [Concomitant]
  5. FISH OIL [Concomitant]
     Active Substance: FISH OIL
  6. ABIRATERONE. [Suspect]
     Active Substance: ABIRATERONE ACETATE
     Indication: PROSTATE CANCER
     Route: 048
     Dates: start: 20190618
  7. JUICE PLUS FIBRE [Concomitant]

REACTIONS (1)
  - Hot flush [None]

NARRATIVE: CASE EVENT DATE: 20201210
